FAERS Safety Report 9584910 (Version 1)
Quarter: 2013Q4

REPORT INFORMATION
  Report Type: Spontaneous
  Country: US (occurrence: US)
  Receive Date: 20131002
  Receipt Date: 20131002
  Transmission Date: 20140711
  Serious: No
  Sender: FDA-Public Use
  Company Number: US-AMGEN-USASP2013057268

PATIENT
  Age: 63 Year
  Sex: Female
  Weight: 86.17 kg

DRUGS (6)
  1. ENBREL [Suspect]
     Indication: PRODUCT USED FOR UNKNOWN INDICATION
     Dosage: 50 MG, QWK
     Route: 058
  2. SYNTHROID [Concomitant]
     Dosage: 150 MUG, UNK
  3. TRAZODONE [Concomitant]
     Dosage: 100 MG, UNK
  4. CRESTOR [Concomitant]
     Dosage: 10 MG, UNK
  5. CELEXA                             /00582602/ [Concomitant]
     Dosage: 40 MG, UNK
  6. LOSARTAN                           /01121602/ [Concomitant]
     Dosage: 100 MG, UNK

REACTIONS (3)
  - Injection site swelling [Unknown]
  - Injection site reaction [Unknown]
  - Injection site pruritus [Unknown]
